FAERS Safety Report 24108497 (Version 1)
Quarter: 2024Q3

REPORT INFORMATION
  Report Type: Spontaneous
  Country: US (occurrence: US)
  Receive Date: 20240718
  Receipt Date: 20240718
  Transmission Date: 20241016
  Serious: No
  Sender: TARO
  Company Number: US-TARO PHARMACEUTICALS USA INC.-2023TAR00715

PATIENT

DRUGS (1)
  1. BETAMETHASONE DIPROPIONATE\CLOTRIMAZOLE [Suspect]
     Active Substance: BETAMETHASONE DIPROPIONATE\CLOTRIMAZOLE
     Indication: Fungal skin infection
     Dosage: UNK, BID
     Route: 061
     Dates: start: 20230616

REACTIONS (1)
  - Skin burning sensation [Not Recovered/Not Resolved]
